FAERS Safety Report 9001590 (Version 1)
Quarter: 2013Q1

REPORT INFORMATION
  Report Type: Spontaneous
  Country: US (occurrence: US)
  Receive Date: 20130107
  Receipt Date: 20130107
  Transmission Date: 20140127
  Serious: No
  Sender: FDA-Public Use
  Company Number: US-JNJFOC-20130101087

PATIENT
  Sex: Female
  Weight: 83.92 kg

DRUGS (3)
  1. DURAGESIC [Suspect]
     Indication: PAIN
     Route: 062
     Dates: start: 201212
  2. DIOVAN HCT [Concomitant]
     Indication: BLOOD PRESSURE
     Route: 048
  3. XANAX [Concomitant]
     Indication: NERVOUSNESS
     Route: 048

REACTIONS (6)
  - Hypoaesthesia [Not Recovered/Not Resolved]
  - Wrong technique in drug usage process [Unknown]
  - Drug ineffective [Not Recovered/Not Resolved]
  - Therapeutic response decreased [Not Recovered/Not Resolved]
  - Product quality issue [Unknown]
  - Wrong technique in drug usage process [Unknown]
